FAERS Safety Report 22598773 (Version 1)
Quarter: 2023Q2

REPORT INFORMATION
  Report Type: Spontaneous
  Country: CN (occurrence: None)
  Receive Date: 20230614
  Receipt Date: 20230614
  Transmission Date: 20230722
  Serious: Yes (Death, Other)
  Sender: FDA-Public Use
  Company Number: CN-ROCHE-3366894

PATIENT
  Sex: Female

DRUGS (1)
  1. HERCEPTIN [Suspect]
     Active Substance: TRASTUZUMAB
     Indication: HER2 positive breast cancer
     Route: 065

REACTIONS (5)
  - Death [Fatal]
  - Cardiac failure [Unknown]
  - Pulmonary embolism [Unknown]
  - Acute coronary syndrome [Unknown]
  - Pulmonary arterial pressure increased [Unknown]
